FAERS Safety Report 16980075 (Version 2)
Quarter: 2019Q4

REPORT INFORMATION
  Report Type: Report from Study
  Country: US (occurrence: US)
  Receive Date: 20191031
  Receipt Date: 20191126
  Transmission Date: 20200122
  Serious: Yes (Hospitalization, Other)
  Sender: FDA-Public Use
  Company Number: US-MALLINCKRODT-T201902879

PATIENT
  Age: 56 Year
  Sex: Male

DRUGS (14)
  1. METOLAZONE. [Concomitant]
     Active Substance: METOLAZONE
     Indication: SWELLING
     Dosage: UNK (MONDAY, WEDNESDAY, FRIDAY)
     Route: 065
  2. RITUXAN [Suspect]
     Active Substance: RITUXIMAB
     Indication: PRODUCT USED FOR UNKNOWN INDICATION
     Dosage: UNK
     Route: 065
     Dates: start: 20191107
  3. REPOSITORY CORTICOTROPIN INJECTION [Suspect]
     Active Substance: CORTICOTROPIN
     Dosage: 80 UNITS/1ML, 2 TIMES PER WEEK, MONDAY/THURSDAY
     Route: 058
     Dates: start: 2019, end: 2019
  4. REPOSITORY CORTICOTROPIN INJECTION [Suspect]
     Active Substance: CORTICOTROPIN
     Dosage: 80 UNITS/1ML, 2 TIMES PER WEEK, MONDAY/THURSDAY
     Route: 058
     Dates: start: 2019, end: 20191003
  5. WARFARIN [Concomitant]
     Active Substance: WARFARIN
     Indication: PRODUCT USED FOR UNKNOWN INDICATION
     Dosage: 1 MG
     Route: 065
  6. REPOSITORY CORTICOTROPIN INJECTION [Suspect]
     Active Substance: CORTICOTROPIN
     Indication: NEPHROTIC SYNDROME
     Dosage: 80 UNITS/1ML, 2 TIMES PER WEEK, MONDAY/THURSDAY
     Route: 058
     Dates: start: 20190401, end: 2019
  7. POTASSIUM [Concomitant]
     Active Substance: POTASSIUM
     Indication: PRODUCT USED FOR UNKNOWN INDICATION
     Dosage: UNK, UNK
     Route: 065
  8. ZICAM NOS [Concomitant]
     Active Substance: ACETAMINOPHEN\CHLORPHENIRAMINE MALEATE\DEXTROMETHORPHAN HYDROBROMIDE\PHENYLEPHRINE HYDROCHLORIDE OR ACETAMINOPHEN\DEXTROMETHORPHAN HYDROBROMIDE\DOXYLAMINE SUCCINATE\PHENYLEPHRINE HYDROCHLORIDE OR HOMEOPATHICS
     Indication: NASOPHARYNGITIS
     Dosage: UNK, UNK
     Route: 065
  9. FUROSEMIDE. [Concomitant]
     Active Substance: FUROSEMIDE
     Indication: PRODUCT USED FOR UNKNOWN INDICATION
     Dosage: UNK, (TUESDAY, THRSDAY, SATURDAY)
     Route: 065
  10. DILANTIN [Concomitant]
     Active Substance: PHENYTOIN
     Indication: BLOOD PRESSURE ABNORMAL
     Dosage: UNK, UNK
     Route: 065
  11. LOSARTAN. [Concomitant]
     Active Substance: LOSARTAN
     Indication: BLOOD PRESSURE ABNORMAL
     Dosage: UNK, UNK
     Route: 065
  12. CENTRUM A TO ZINC [Concomitant]
     Active Substance: MINERALS\VITAMINS
     Indication: PRODUCT USED FOR UNKNOWN INDICATION
     Dosage: UNK
     Route: 065
  13. METOLAZONE. [Concomitant]
     Active Substance: METOLAZONE
     Indication: ABDOMINAL DISTENSION
  14. CYCLOSPORINE. [Concomitant]
     Active Substance: CYCLOSPORINE
     Indication: PRODUCT USED FOR UNKNOWN INDICATION
     Dosage: UNK, TWICE A DAY
     Route: 065

REACTIONS (43)
  - Food craving [Not Recovered/Not Resolved]
  - Fear of injection [Not Recovered/Not Resolved]
  - Gait disturbance [Unknown]
  - Vision blurred [Recovering/Resolving]
  - Blood pressure increased [Recovering/Resolving]
  - Dyspnoea [Not Recovered/Not Resolved]
  - Arthralgia [Unknown]
  - Loss of personal independence in daily activities [Unknown]
  - Therapeutic response shortened [Not Recovered/Not Resolved]
  - Drug ineffective [Not Recovered/Not Resolved]
  - Blood glucose increased [Recovering/Resolving]
  - Bowel movement irregularity [Recovering/Resolving]
  - Insomnia [Recovering/Resolving]
  - Frustration tolerance decreased [Unknown]
  - Hypoaesthesia [Recovering/Resolving]
  - Malaise [Unknown]
  - Feeling abnormal [Unknown]
  - Abdominal distension [Not Recovered/Not Resolved]
  - Decreased appetite [Not Recovered/Not Resolved]
  - Dyspepsia [Recovering/Resolving]
  - Laziness [Not Recovered/Not Resolved]
  - Injection site discolouration [Not Recovered/Not Resolved]
  - Injection site haemorrhage [Recovering/Resolving]
  - Peripheral swelling [Recovering/Resolving]
  - Weight increased [Not Recovered/Not Resolved]
  - Asthenia [Not Recovered/Not Resolved]
  - Thirst [Unknown]
  - Pollakiuria [Not Recovered/Not Resolved]
  - Blood calcium decreased [Not Recovered/Not Resolved]
  - Balance disorder [Unknown]
  - Memory impairment [Not Recovered/Not Resolved]
  - Weight decreased [Not Recovered/Not Resolved]
  - Product dose omission [Unknown]
  - Blood magnesium decreased [Recovering/Resolving]
  - Lethargy [Not Recovered/Not Resolved]
  - Nausea [Recovering/Resolving]
  - Muscle spasms [Unknown]
  - Energy increased [Recovering/Resolving]
  - Nightmare [Unknown]
  - Blood potassium decreased [Recovering/Resolving]
  - Hangover [Unknown]
  - Fatigue [Not Recovered/Not Resolved]
  - Rash [Recovering/Resolving]

NARRATIVE: CASE EVENT DATE: 2019
